FAERS Safety Report 9265851 (Version 1)
Quarter: 2013Q2

REPORT INFORMATION
  Report Type: Spontaneous
  Country: US (occurrence: US)
  Receive Date: 20130501
  Receipt Date: 20130501
  Transmission Date: 20140414
  Serious: No
  Sender: FDA-Public Use
  Company Number: US-ASTRAZENECA-2013SE29134

PATIENT
  Sex: Female

DRUGS (2)
  1. NEXIUM [Suspect]
     Indication: GASTRIC DISORDER
     Route: 048
  2. REQUIP [Concomitant]
     Indication: RESTLESS LEGS SYNDROME

REACTIONS (4)
  - Restless legs syndrome [Unknown]
  - Muscle spasms [Unknown]
  - Feeling jittery [Unknown]
  - Muscular weakness [Unknown]
